FAERS Safety Report 7217054-X (Version None)
Quarter: 2010Q4

REPORT INFORMATION
  Report Type: 
  Country: None (occurrence: None)
  Receive Date: 20101230
  Receipt Date: 20101215
  Transmission Date: 20110411
  Serious: Yes (Hospitalization)
  Sender: FDA-Public Use
  Company Number: GER/USA/10/0016979

PATIENT
  Age: 16 Year
  Sex: Male

DRUGS (2)
  1. FLUOXETINE [Suspect]
     Indication: BIPOLAR DISORDER
     Dosage: 30 MG, 1 IN 1 D, UNKNOWN
  2. ARIPIPRAZOLE [Suspect]
     Dosage: 10  MG 1 IN 1 D

REACTIONS (12)
  - DRUG ERUPTION [None]
  - DRUG INTERACTION [None]
  - DRUG RASH WITH EOSINOPHILIA AND SYSTEMIC SYMPTOMS [None]
  - EOSINOPHILIA [None]
  - HAEMATURIA [None]
  - HEPATITIS [None]
  - LYMPHADENOPATHY [None]
  - PYREXIA [None]
  - RENAL IMPAIRMENT [None]
  - RHABDOMYOLYSIS [None]
  - TACHYCARDIA [None]
  - TACHYPNOEA [None]
